FAERS Safety Report 15042190 (Version 3)
Quarter: 2018Q3

REPORT INFORMATION
  Report Type: Spontaneous
  Country: US (occurrence: US)
  Receive Date: 20180621
  Receipt Date: 20180913
  Transmission Date: 20181010
  Serious: No
  Sender: FDA-Public Use
  Company Number: US-PFIZER INC-2018252240

PATIENT
  Age: 64 Year
  Sex: Female
  Weight: 78.5 kg

DRUGS (4)
  1. HYDROXYZINE PAMOATE. [Suspect]
     Active Substance: HYDROXYZINE PAMOATE
     Dosage: UNK
  2. HYDROXYZINE HCL [Suspect]
     Active Substance: HYDROXYZINE HYDROCHLORIDE
     Indication: URTICARIA CHRONIC
     Dosage: 25 MG, UNK
  3. XOLAIR [Concomitant]
     Active Substance: OMALIZUMAB
     Indication: URTICARIA
     Dosage: UNK (SHOT)
  4. HYDROXYZINE HCL [Suspect]
     Active Substance: HYDROXYZINE HYDROCHLORIDE
     Indication: URTICARIA

REACTIONS (1)
  - Drug ineffective [Unknown]
